FAERS Safety Report 24944777 (Version 5)
Quarter: 2025Q2

REPORT INFORMATION
  Report Type: Spontaneous
  Country: CA (occurrence: CA)
  Receive Date: 20250208
  Receipt Date: 20250528
  Transmission Date: 20250717
  Serious: Yes (Other)
  Sender: CELLTRION
  Company Number: CA-PFIZER INC-202500024240

PATIENT

DRUGS (6)
  1. INFLECTRA [Suspect]
     Active Substance: INFLIXIMAB-DYYB
     Indication: Crohn^s disease
     Route: 042
     Dates: start: 20241205
  2. INFLECTRA [Suspect]
     Active Substance: INFLIXIMAB-DYYB
     Route: 042
     Dates: start: 20250130
  3. INFLECTRA [Suspect]
     Active Substance: INFLIXIMAB-DYYB
     Route: 042
     Dates: start: 20250326
  4. INFLECTRA [Suspect]
     Active Substance: INFLIXIMAB-DYYB
     Route: 042
     Dates: start: 20250521
  5. POLYETHYLENE GLYCOL 3350 [Concomitant]
     Active Substance: POLYETHYLENE GLYCOL 3350
  6. LYRICA [Concomitant]
     Active Substance: PREGABALIN
     Dates: end: 202402

REACTIONS (4)
  - Joint injection [Recovering/Resolving]
  - Sciatica [Recovering/Resolving]
  - Hypertension [Unknown]
  - Condition aggravated [Recovering/Resolving]

NARRATIVE: CASE EVENT DATE: 20250101
